FAERS Safety Report 12323455 (Version 2)
Quarter: 2016Q3

REPORT INFORMATION
  Report Type: Report from Study
  Country: GB (occurrence: GB)
  Receive Date: 20160502
  Receipt Date: 20160728
  Transmission Date: 20161109
  Serious: Yes (Hospitalization)
  Sender: FDA-Public Use
  Company Number: GB-JNJFOC-20160425805

PATIENT
  Sex: Male

DRUGS (1)
  1. STELARA [Suspect]
     Active Substance: USTEKINUMAB
     Indication: PSORIASIS
     Route: 058
     Dates: start: 20151222

REACTIONS (8)
  - Tinnitus [Unknown]
  - Visual impairment [Unknown]
  - Ear discomfort [Unknown]
  - Lethargy [Unknown]
  - Streptococcal infection [Unknown]
  - Diarrhoea [Unknown]
  - Influenza like illness [Unknown]
  - Psoriasis [Unknown]
